FAERS Safety Report 8595675-X (Version None)
Quarter: 2012Q3

REPORT INFORMATION
  Report Type: 
  Country: None (occurrence: None)
  Receive Date: 20120815
  Receipt Date: 20120808
  Transmission Date: 20120928
  Serious: Yes (Other)
  Sender: FDA-Public Use
  Company Number: CA-ROCHE-1063859

PATIENT
  Sex: Male
  Weight: 91.5 kg

DRUGS (4)
  1. DEXAMETHASONE [Concomitant]
  2. AVASTIN [Suspect]
     Indication: GLIOBLASTOMA
     Route: 042
     Dates: start: 20120410, end: 20120718
  3. AVASTIN [Suspect]
     Route: 042
     Dates: start: 20120508, end: 20120718
  4. RANITIDINE [Concomitant]

REACTIONS (6)
  - DRUG INEFFECTIVE [None]
  - CATHETER SITE ERYTHEMA [None]
  - DISEASE PROGRESSION [None]
  - NEOPLASM MALIGNANT [None]
  - WEIGHT INCREASED [None]
  - METASTASIS [None]
